FAERS Safety Report 6044412-1 (Version None)
Quarter: 2009Q1

REPORT INFORMATION
  Report Type: 
  Country: None (occurrence: None)
  Receive Date: 20090120
  Receipt Date: 20090114
  Transmission Date: 20090719
  Serious: Yes (Death)
  Sender: FDA-Public Use
  Company Number: JP-ELI_LILLY_AND_COMPANY-JP200811002807

PATIENT
  Sex: Female
  Weight: 47 kg

DRUGS (5)
  1. RALOXIFENE HYDROCHLORIDE [Suspect]
     Indication: OSTEOPOROSIS POSTMENOPAUSAL
     Dosage: 60 MG, DAILY (1/D)
     Route: 048
     Dates: start: 20050328, end: 20080218
  2. ALFAROL [Concomitant]
     Indication: OSTEOPOROSIS POSTMENOPAUSAL
     Dosage: 0.5 UG, DAILY (1/D)
     Route: 048
     Dates: start: 20050328, end: 20080218
  3. HERBESSER [Concomitant]
     Indication: ANGINA PECTORIS
     Dosage: 60 MG, DAILY (1/D)
     Route: 048
     Dates: start: 20080201, end: 20080218
  4. HALCION [Concomitant]
     Indication: INSOMNIA
     Dosage: 0.25 MG, DAILY (1/D)
     Route: 048
     Dates: end: 20080218
  5. TENORMIN [Concomitant]
     Indication: ANGINA PECTORIS
     Dosage: 50 MG, DAILY (1/D)
     Route: 048
     Dates: end: 20080201

REACTIONS (1)
  - CARDIAC FAILURE [None]
